FAERS Safety Report 15004164 (Version 2)
Quarter: 2018Q3

REPORT INFORMATION
  Report Type: Spontaneous
  Country: ES (occurrence: ES)
  Receive Date: 20180613
  Receipt Date: 20180704
  Transmission Date: 20181010
  Serious: Yes (Hospitalization, Other)
  Sender: FDA-Public Use
  Company Number: ES-ROCHE-2136896

PATIENT
  Age: 61 Year
  Sex: Female

DRUGS (7)
  1. PANTOPRAZOL [Concomitant]
     Active Substance: PANTOPRAZOLE SODIUM
     Indication: PRODUCT USED FOR UNKNOWN INDICATION
     Route: 065
  2. RIFAXIMINA [Concomitant]
     Active Substance: RIFAXIMIN
     Indication: DIVERTICULITIS
     Dosage: UNK
     Route: 065
     Dates: start: 201710
  3. ANASMA (SPAIN) [Concomitant]
     Indication: PRODUCT USED FOR UNKNOWN INDICATION
     Route: 065
  4. SINGULAIR [Concomitant]
     Active Substance: MONTELUKAST SODIUM
     Indication: PRODUCT USED FOR UNKNOWN INDICATION
     Route: 065
  5. XOLAIR [Suspect]
     Active Substance: OMALIZUMAB
     Indication: ASTHMA
     Route: 065
     Dates: start: 2015, end: 201709
  6. BUDESONIDA [Concomitant]
     Indication: PRODUCT USED FOR UNKNOWN INDICATION
     Dosage: EVERY NIGHT
     Route: 045
  7. ARCOXIA [Concomitant]
     Active Substance: ETORICOXIB
     Indication: DRUG HYPERSENSITIVITY
     Dosage: UNK
     Route: 065
     Dates: start: 201710

REACTIONS (9)
  - Haematochezia [Unknown]
  - Immune thrombocytopenic purpura [Unknown]
  - Thrombocytopenia [Unknown]
  - Abdominal distension [Unknown]
  - Haematoma [Unknown]
  - Inguinal hernia [Unknown]
  - Asthma [Unknown]
  - Abdominal pain [Unknown]
  - Abdominal pain lower [Unknown]

NARRATIVE: CASE EVENT DATE: 201710
